FAERS Safety Report 9293897 (Version 1)
Quarter: 2013Q1

REPORT INFORMATION
  Report Type: Spontaneous
  Country: US (occurrence: None)
  Receive Date: 20121217
  Receipt Date: 20121217
  Transmission Date: 20140127
  Serious: Yes (Hospitalization, Other)
  Sender: FDA-Public Use
  Company Number: 1000036841

PATIENT
  Age: 86 Year
  Sex: Female

DRUGS (4)
  1. NAMENDA [Suspect]
     Indication: DEMENTIA ALZHEIMER^S TYPE
     Dosage: 5 MG, 1 IN 1 D
     Dates: start: 20100606, end: 20100612
  2. NAMENDA [Suspect]
     Indication: DEMENTIA ALZHEIMER^S TYPE
     Dosage: 10 MG, 2 IN 1 D
     Dates: start: 20100627, end: 20111010
  3. HYPERTENSION MEDICATIONS NOS [Concomitant]
  4. ARICEPT [Concomitant]

REACTIONS (4)
  - Hypotension [None]
  - Fall [None]
  - Loss of consciousness [None]
  - Wrist fracture [None]
